FAERS Safety Report 8500862-2 (Version None)
Quarter: 2012Q2

REPORT INFORMATION
  Report Type: 
  Country: None (occurrence: None)
  Receive Date: 20120405
  Receipt Date: 20110128
  Transmission Date: 20120825
  Serious: Yes (Other)
  Sender: FDA-Public Use
  Company Number: PHHY2011US06657

PATIENT
  Age: 86 Year
  Sex: Female

DRUGS (9)
  1. ACETAMINOPHEN [Concomitant]
  2. MELOXICAM [Concomitant]
  3. AMLOIDPINE BESYLATE( AMLODIPINE BESILATE) [Concomitant]
  4. MULTI-VITAMINS [Concomitant]
  5. CALCIUM CARBONATE [Concomitant]
  6. HYDROCODONE BITARTRATE [Concomitant]
  7. RECLAST [Suspect]
     Indication: OSTEOPOROSIS
  8. BENICAR [Concomitant]
  9. VITAMIN D [Concomitant]

REACTIONS (2)
  - BONE PAIN [None]
  - ARTHRALGIA [None]
